FAERS Safety Report 10050336 (Version 2)
Quarter: 2014Q2

REPORT INFORMATION
  Report Type: Spontaneous
  Country: US (occurrence: US)
  Receive Date: 20140401
  Receipt Date: 20140617
  Transmission Date: 20141212
  Serious: Yes (Other)
  Sender: FDA-Public Use
  Company Number: US-BAYER-2014-048946

PATIENT
  Age: 60 Year
  Sex: Male

DRUGS (5)
  1. XOFIGO [Suspect]
     Indication: PROSTATE CANCER STAGE IV
     Dosage: 102.5, EVERY 4 WEEKS
     Route: 042
     Dates: start: 20140121, end: 20140121
  2. XOFIGO [Suspect]
     Indication: METASTASES TO BONE
     Dosage: 102.5, EVERY 4 WEEKS
     Route: 042
     Dates: start: 20140320
  3. DEGARELIX [Concomitant]
  4. XGEVA [Concomitant]
  5. ZYTIGA [Concomitant]

REACTIONS (1)
  - Prostatic specific antigen increased [Not Recovered/Not Resolved]
